FAERS Safety Report 4402973-X (Version None)
Quarter: 2004Q3

REPORT INFORMATION
  Report Type: 
  Country: None (occurrence: None)
  Receive Date: 20040721
  Receipt Date: 20030814
  Transmission Date: 20050211
  Serious: No
  Sender: FDA-Public Use
  Company Number: US-GLAXOSMITHKLINE-A0422172A

PATIENT
  Sex: Male

DRUGS (2)
  1. IMITREX [Suspect]
     Indication: ILL-DEFINED DISORDER
     Dosage: 50MG UNKNOWN
     Route: 048
     Dates: start: 20030101
  2. GLUCOVANCE [Concomitant]
     Dosage: 2.5MG UNKNOWN
     Route: 065

REACTIONS (1)
  - BLOOD GLUCOSE INCREASED [None]
